FAERS Safety Report 5310678-6 (Version None)
Quarter: 2007Q2

REPORT INFORMATION
  Report Type: 
  Country: None (occurrence: None)
  Receive Date: 20070428
  Receipt Date: 20070418
  Transmission Date: 20071010
  Serious: Yes (Other)
  Sender: FDA-Public Use
  Company Number: ES-PFIZER INC-2007031160

PATIENT
  Age: 87 Year
  Sex: Female

DRUGS (7)
  1. CARDURA [Suspect]
     Indication: HYPERTENSION
     Dosage: DAILY DOSE:4MG-TEXT: 4 MG DAILY
     Route: 048
  2. CARDURA [Suspect]
     Dosage: DAILY DOSE:8MG-TEXT:4 MG EVERY 8 HOUR
     Route: 048
     Dates: start: 20060101
  3. CLOPIDOGREL [Concomitant]
  4. AMIODARONE HYDROCHLORIDE [Concomitant]
  5. APOCARD [Concomitant]
  6. TERTENSIF [Concomitant]
     Indication: DIURETIC THERAPY
  7. OMEPRAZOLE [Concomitant]

REACTIONS (1)
  - MACULAR DEGENERATION [None]
